FAERS Safety Report 9993596 (Version 2)
Quarter: 2014Q1

REPORT INFORMATION
  Report Type: Spontaneous
  Country: DK (occurrence: DK)
  Receive Date: 20140310
  Receipt Date: 20140325
  Transmission Date: 20141002
  Serious: Yes (Other)
  Sender: FDA-Public Use
  Company Number: DK-ACTAVIS-2014-04200

PATIENT
  Age: 66 Year
  Sex: Female

DRUGS (1)
  1. LETROZOLE (ARROW GENERICS LTD) [Suspect]
     Indication: BREAST CANCER
     Dosage: 2.5 MG, DAILY
     Route: 048
     Dates: start: 20121026, end: 201312

REACTIONS (5)
  - Affect lability [Not Recovered/Not Resolved]
  - Vision blurred [Recovering/Resolving]
  - Faecal incontinence [Not Recovered/Not Resolved]
  - Urinary incontinence [Not Recovered/Not Resolved]
  - Hot flush [Not Recovered/Not Resolved]
